FAERS Safety Report 4523770-0 (Version None)
Quarter: 2004Q4

REPORT INFORMATION
  Report Type: 
  Country: None (occurrence: None)
  Receive Date: 20041101
  Receipt Date: 20040817
  Transmission Date: 20050328
  Serious: Yes (Other)
  Sender: FDA-Public Use
  Company Number: HQWYE432219AUG04

PATIENT
  Age: 63 Year
  Sex: Female
  Weight: 49.94 kg

DRUGS (2)
  1. PREMARIN [Suspect]
     Indication: OESTROGEN REPLACEMENT THERAPY
     Dosage: 0.625 MG, ORAL
     Route: 048
     Dates: start: 19690101, end: 20040601
  2. LEVOXYL [Concomitant]

REACTIONS (1)
  - MYOCARDIAL INFARCTION [None]
